FAERS Safety Report 5533217-3 (Version None)
Quarter: 2007Q4

REPORT INFORMATION
  Report Type: 
  Country: None (occurrence: None)
  Receive Date: 20071204
  Receipt Date: 20071129
  Transmission Date: 20080405
  Serious: Yes (Hospitalization, Other)
  Sender: FDA-Public Use
  Company Number: JP-MERCK-0712USA00002

PATIENT
  Age: 78 Year
  Sex: Female

DRUGS (5)
  1. HYZAAR [Suspect]
     Route: 048
     Dates: start: 20070711, end: 20071114
  2. NORVASC [Concomitant]
     Route: 048
  3. ASPIRIN [Concomitant]
     Route: 048
  4. OMEPRAL [Concomitant]
     Route: 065
  5. LENDORMIN [Concomitant]
     Route: 048

REACTIONS (1)
  - GLYCOSYLATED HAEMOGLOBIN INCREASED [None]
